FAERS Safety Report 5797448-X (Version None)
Quarter: 2008Q2

REPORT INFORMATION
  Report Type: 
  Country: None (occurrence: None)
  Receive Date: 20080630
  Receipt Date: 20080609
  Transmission Date: 20081010
  Serious: Yes (Hospitalization)
  Sender: FDA-Public Use
  Company Number: PIR# 0806036

PATIENT
  Age: 25 Year
  Sex: Female

DRUGS (1)
  1. LIDOCAINE HCL [Suspect]

REACTIONS (15)
  - ATOPY [None]
  - BRONCHOSPASM [None]
  - COUGH [None]
  - DRUG EXPOSURE BEFORE PREGNANCY [None]
  - DYSPHONIA [None]
  - LIP SWELLING [None]
  - OEDEMA [None]
  - PRURIGO [None]
  - PRURITUS [None]
  - RASH PAPULAR [None]
  - SKIN TEST POSITIVE [None]
  - SYNCOPE VASOVAGAL [None]
  - THERAPEUTIC RESPONSE UNEXPECTED [None]
  - THROAT TIGHTNESS [None]
  - TONGUE OEDEMA [None]
